FAERS Safety Report 6679398-X (Version None)
Quarter: 2010Q2

REPORT INFORMATION
  Report Type: 
  Country: None (occurrence: None)
  Receive Date: 20100409
  Receipt Date: 20100326
  Transmission Date: 20101027
  Serious: Yes (Other)
  Sender: FDA-Public Use
  Company Number: 232474J10USA

PATIENT
  Age: 47 Year
  Sex: Female

DRUGS (2)
  1. REBIF [Suspect]
     Dosage: 44 MCG, 3 IN 1 WK, SUBCUTANEOUS
     Route: 058
     Dates: start: 20091209, end: 20100324
  2. KLONOPIN [Concomitant]

REACTIONS (5)
  - ANGER [None]
  - ANXIETY [None]
  - FATIGUE [None]
  - LYMPHADENOPATHY [None]
  - SELF-INJURIOUS IDEATION [None]
